FAERS Safety Report 9696921 (Version 2)
Quarter: 2013Q4

REPORT INFORMATION
  Report Type: Spontaneous
  Country: US (occurrence: US)
  Receive Date: 20131119
  Receipt Date: 20131119
  Transmission Date: 20140711
  Serious: No
  Sender: FDA-Public Use
  Company Number: US-GILEAD-2007-0013914

PATIENT
  Sex: Male
  Weight: 120.2 kg

DRUGS (14)
  1. LETAIRIS [Suspect]
     Indication: PULMONARY ARTERIAL HYPERTENSION
     Route: 048
  2. SINGULAIR [Concomitant]
     Route: 048
  3. FOSAMAX [Concomitant]
     Route: 048
  4. PREDNISONE [Concomitant]
     Route: 048
  5. LITHIUM CARBONATE [Concomitant]
     Route: 048
  6. CLONAZEPAM [Concomitant]
     Route: 048
  7. GABAPENTIN [Concomitant]
     Route: 048
  8. BUPROPION HCL [Concomitant]
     Route: 048
  9. NEXIUM [Concomitant]
     Route: 048
  10. FLUOXETINE [Concomitant]
     Route: 048
  11. THIOTHIXENE [Concomitant]
     Route: 048
  12. DILTIAZEM [Concomitant]
     Route: 048
  13. THEODUR [Concomitant]
     Route: 048
  14. HYDROXYCHLOROQUINE [Concomitant]
     Route: 048

REACTIONS (3)
  - Skin discolouration [Recovered/Resolved]
  - Pain in extremity [Recovered/Resolved]
  - Local swelling [Recovered/Resolved]
